FAERS Safety Report 9924790 (Version 1)
Quarter: 2014Q1

REPORT INFORMATION
  Report Type: Spontaneous
  Country: US (occurrence: None)
  Receive Date: 20140221
  Receipt Date: 20140221
  Transmission Date: 20141002
  Serious: Yes (Hospitalization)
  Sender: FDA-Public Use
  Company Number: 2014P1001296

PATIENT
  Age: 58 Year
  Sex: Female

DRUGS (2)
  1. AMOXICILLIN [Suspect]
     Indication: ANTIBIOTIC PROPHYLAXIS
  2. EPINEPHRINE [Concomitant]

REACTIONS (10)
  - Headache [None]
  - Photophobia [None]
  - Vomiting [None]
  - Diarrhoea [None]
  - Pyrexia [None]
  - Chills [None]
  - Myalgia [None]
  - Meningitis aseptic [None]
  - Hypersensitivity [None]
  - Type III immune complex mediated reaction [None]
